FAERS Safety Report 20732877 (Version 1)
Quarter: 2022Q2

REPORT INFORMATION
  Report Type: Report from Study
  Country: US (occurrence: US)
  Receive Date: 20220420
  Receipt Date: 20220420
  Transmission Date: 20220721
  Serious: Yes (Hospitalization, Other)
  Sender: FDA-Public Use
  Company Number: US-BRISTOL-MYERS SQUIBB COMPANY-2022-020293

PATIENT
  Age: 54 Year
  Sex: Male
  Weight: 66.99 kg

DRUGS (1)
  1. REVLIMID [Suspect]
     Active Substance: LENALIDOMIDE
     Indication: Plasma cell myeloma
     Dosage: 1 CAP DAILY FOR 21 DAYS
     Route: 048
     Dates: start: 20200528

REACTIONS (1)
  - Abdominal infection [Unknown]

NARRATIVE: CASE EVENT DATE: 20220406
